FAERS Safety Report 6155451-4 (Version None)
Quarter: 2009Q2

REPORT INFORMATION
  Report Type: 
  Country: None (occurrence: None)
  Receive Date: 20090415
  Receipt Date: 20090406
  Transmission Date: 20091009
  Serious: Yes (Hospitalization)
  Sender: FDA-Public Use
  Company Number: PHHO2009US01476

PATIENT
  Sex: Female
  Weight: 50.62 kg

DRUGS (3)
  1. STI571/CGP57148B T35717+TAB [Suspect]
     Indication: CHRONIC MYELOID LEUKAEMIA
     Dosage: 400 MG, QD
     Route: 048
     Dates: start: 20060921, end: 20090103
  2. PROPOFOL [Suspect]
     Dosage: UNK
     Dates: start: 20090401, end: 20090401
  3. HEPARIN [Concomitant]

REACTIONS (13)
  - BACTERAEMIA [None]
  - CALCULUS URINARY [None]
  - DEHYDRATION [None]
  - FLANK PAIN [None]
  - HYPOTENSION [None]
  - NAUSEA [None]
  - PLATELET COUNT DECREASED [None]
  - RENAL FAILURE ACUTE [None]
  - TROPONIN INCREASED [None]
  - URETERAL STENT INSERTION [None]
  - URINARY TRACT INFECTION [None]
  - URINARY TRACT OBSTRUCTION [None]
  - VOMITING [None]
